FAERS Safety Report 8517289-X (Version None)
Quarter: 2012Q3

REPORT INFORMATION
  Report Type: 
  Country: None (occurrence: None)
  Receive Date: 20120718
  Receipt Date: 20120712
  Transmission Date: 20120928
  Serious: Yes (Hospitalization, Other)
  Sender: FDA-Public Use
  Company Number: US-BAYER-2012-070722

PATIENT
  Age: 26 Year
  Sex: Female
  Weight: 89.342 kg

DRUGS (4)
  1. YASMIN [Suspect]
  2. YAZ [Suspect]
  3. DEPAKOTE [Concomitant]
     Dosage: 125 MG, UNK
     Route: 048
  4. MULTI-VITAMIN [Concomitant]
     Dosage: DAILY
     Route: 048

REACTIONS (2)
  - CHOLECYSTITIS CHRONIC [None]
  - PULMONARY EMBOLISM [None]
